FAERS Safety Report 9359141 (Version 3)
Quarter: 2013Q4

REPORT INFORMATION
  Report Type: Spontaneous
  Country: US (occurrence: US)
  Receive Date: 20130620
  Receipt Date: 20131216
  Transmission Date: 20140711
  Serious: Yes (Hospitalization, Other)
  Sender: FDA-Public Use
  Company Number: US-B.I. PHARMACEUTICALS,INC./RIDGEFIELD-2013-BI-17414BP

PATIENT
  Age: 83 Year
  Sex: Male
  Weight: 68.04 kg

DRUGS (22)
  1. PRADAXA [Suspect]
     Indication: ANTICOAGULANT THERAPY
     Dosage: 300 MG
     Dates: start: 20101108, end: 20120725
  2. PRADAXA [Suspect]
     Indication: ATRIAL FIBRILLATION
  3. ZANTAC [Concomitant]
     Dosage: 300 MG
     Dates: start: 201006
  4. K-DUR [Concomitant]
     Dosage: 10 MEQ
  5. LASIX [Concomitant]
     Dosage: 40 MG
     Dates: start: 201205
  6. IRON SULFATE [Concomitant]
     Dosage: 325 MG
  7. CENTRUM SILVER [Concomitant]
  8. VITAMIN [Concomitant]
  9. VICODIN [Concomitant]
  10. CITALOPRAM [Concomitant]
     Dosage: 40 MG
  11. GABAPENTIN [Concomitant]
     Dosage: 1200 MG
  12. PAMELOR [Concomitant]
     Dosage: 25 MG
  13. REQUIP [Concomitant]
     Dates: start: 201111
  14. CLONAZEPAM [Concomitant]
     Dosage: 0.5 MG
     Dates: start: 201201
  15. BUDESONIDE [Concomitant]
     Dates: start: 201202
  16. ANDROGEL/ANDRODERM [Concomitant]
     Dates: start: 201202
  17. POLYETHYLENE GLYCOL [Concomitant]
     Dates: start: 201006, end: 201205
  18. MEGESTROL [Concomitant]
     Dates: start: 201009, end: 201204
  19. DILTIAZEM [Concomitant]
     Dates: start: 201010, end: 201109
  20. KLOR-CON [Concomitant]
     Dates: start: 201111
  21. AXIRON [Concomitant]
     Dates: start: 201112, end: 201205
  22. LEXAPRO [Concomitant]
     Dosage: 20 MG
     Dates: start: 201204

REACTIONS (6)
  - Gastrointestinal haemorrhage [Unknown]
  - Gastrointestinal haemorrhage [Unknown]
  - Coagulopathy [Unknown]
  - Renal failure acute [Unknown]
  - Anaemia [Unknown]
  - Syncope [Unknown]
